FAERS Safety Report 18170049 (Version 1)
Quarter: 2020Q3

REPORT INFORMATION
  Report Type: Spontaneous
  Country: US (occurrence: US)
  Receive Date: 20200819
  Receipt Date: 20200819
  Transmission Date: 20201103
  Serious: No
  Sender: FDA-Public Use
  Company Number: US-HORIZON-TEP-1424-2020

PATIENT
  Age: 50 Year
  Sex: Female

DRUGS (4)
  1. METHIMAZOLE. [Concomitant]
     Active Substance: METHIMAZOLE
  2. EPHINEPHRINE [Concomitant]
     Active Substance: EPINEPHRINE
  3. IBUPROFEN. [Concomitant]
     Active Substance: IBUPROFEN
  4. TEPEZZA [Suspect]
     Active Substance: TEPROTUMUMAB-TRBW
     Indication: TOXIC GOITRE
     Dosage: EVERY 3 WEEKS
     Route: 042

REACTIONS (2)
  - Nerve compression [Unknown]
  - Pain [Unknown]
